FAERS Safety Report 7406077-3 (Version None)
Quarter: 2011Q2

REPORT INFORMATION
  Report Type: 
  Country: None (occurrence: None)
  Receive Date: 20110411
  Receipt Date: 20070903
  Transmission Date: 20111010
  Serious: Yes (Other)
  Sender: FDA-Public Use
  Company Number: D0070950A

PATIENT
  Sex: Female

DRUGS (7)
  1. SPIRIVA [Suspect]
     Route: 065
     Dates: start: 20020101
  2. PARACETAMOL [Suspect]
     Indication: PAIN
     Route: 065
     Dates: start: 20050801
  3. ALBUTEROL SULFATE AUTOHALER [Suspect]
     Route: 065
     Dates: start: 20020101
  4. ATMADISC [Suspect]
     Route: 065
     Dates: start: 20020101
  5. DOLORMIN [Suspect]
     Indication: PAIN
     Route: 065
     Dates: start: 20060215
  6. HOMEOPATHIC MEDICINE [Suspect]
     Route: 065
     Dates: start: 20060215
  7. IBUPROFEN [Suspect]
     Indication: PAIN
     Route: 065
     Dates: start: 20060215

REACTIONS (13)
  - SLEEP DISORDER [None]
  - IRRITABILITY [None]
  - JOINT SWELLING [None]
  - MYALGIA [None]
  - AGGRESSION [None]
  - OEDEMA PERIPHERAL [None]
  - HEADACHE [None]
  - WEIGHT INCREASED [None]
  - MAGNESIUM DEFICIENCY [None]
  - DISTURBANCE IN ATTENTION [None]
  - ABNORMAL BEHAVIOUR [None]
  - DEPRESSION [None]
  - FATIGUE [None]
